FAERS Safety Report 19197815 (Version 20)
Quarter: 2022Q4

REPORT INFORMATION
  Report Type: Spontaneous
  Country: CA (occurrence: CA)
  Receive Date: 20210430
  Receipt Date: 20221128
  Transmission Date: 20230113
  Serious: Yes (Other)
  Sender: FDA-Public Use
  Company Number: CA-CELLTRION INC.-2021CA003360

PATIENT

DRUGS (22)
  1. INFLECTRA [Suspect]
     Active Substance: INFLIXIMAB-DYYB
     Indication: Colitis ulcerative
     Dosage: 300 MG ,0, 2, 6 THEN EVERY 8 WEEKS
     Route: 042
     Dates: start: 20201117, end: 20210615
  2. INFLECTRA [Suspect]
     Active Substance: INFLIXIMAB-DYYB
     Dosage: 300 MG ,0, 2, 6 THEN EVERY 8 WEEKS
     Route: 042
     Dates: start: 20201228
  3. INFLECTRA [Suspect]
     Active Substance: INFLIXIMAB-DYYB
     Dosage: 300 MG, 0, 2, 6 THEN EVERY 8 WEEKS
     Route: 042
     Dates: start: 20210222
  4. INFLECTRA [Suspect]
     Active Substance: INFLIXIMAB-DYYB
     Dosage: 300 MG ,0, 2, 6 THEN EVERY 8 WEEKS
     Route: 042
     Dates: start: 20210420
  5. INFLECTRA [Suspect]
     Active Substance: INFLIXIMAB-DYYB
     Dosage: 300 MG ,0, 2, 6 THEN EVERY 8 WEEKS
     Route: 042
     Dates: start: 20210615
  6. INFLECTRA [Suspect]
     Active Substance: INFLIXIMAB-DYYB
     Dosage: 300 MG ,0, 2, 6 THEN EVERY 8 WEEKS
     Route: 042
     Dates: start: 20210728
  7. INFLECTRA [Suspect]
     Active Substance: INFLIXIMAB-DYYB
     Dosage: 300 MG ,EVERY 4 WEEKS
     Route: 042
     Dates: start: 20210728
  8. INFLECTRA [Suspect]
     Active Substance: INFLIXIMAB-DYYB
     Dosage: 300 MG ,EVERY 4 WEEKS
     Route: 042
     Dates: start: 20210825
  9. INFLECTRA [Suspect]
     Active Substance: INFLIXIMAB-DYYB
     Dosage: 300 MG ,EVERY 4 WEEKS
     Route: 042
     Dates: start: 20220112
  10. INFLECTRA [Suspect]
     Active Substance: INFLIXIMAB-DYYB
     Dosage: 300 MG, EVERY 4 WEEKS
     Route: 042
     Dates: start: 20220209
  11. INFLECTRA [Suspect]
     Active Substance: INFLIXIMAB-DYYB
     Dosage: 300 MG ,EVERY 4 WEEKS
     Route: 042
     Dates: start: 20220310
  12. INFLECTRA [Suspect]
     Active Substance: INFLIXIMAB-DYYB
     Dosage: 300 MG ,EVERY 4 WEEKS
     Route: 042
     Dates: start: 20220406
  13. INFLECTRA [Suspect]
     Active Substance: INFLIXIMAB-DYYB
     Dosage: 300 MG ,EVERY 4 WEEKS
     Route: 042
     Dates: start: 20220505
  14. INFLECTRA [Suspect]
     Active Substance: INFLIXIMAB-DYYB
     Dosage: 300 MG ,EVERY 4 WEEKS
     Route: 042
     Dates: start: 20220602
  15. INFLECTRA [Suspect]
     Active Substance: INFLIXIMAB-DYYB
     Dosage: 300 MG,EVERY 4 WEEKS
     Route: 042
     Dates: start: 20220629
  16. INFLECTRA [Suspect]
     Active Substance: INFLIXIMAB-DYYB
     Dosage: 300 MG ,EVERY 4 WEEKS
     Route: 042
     Dates: start: 20220727
  17. INFLECTRA [Suspect]
     Active Substance: INFLIXIMAB-DYYB
     Dosage: 300 MG ,EVERY 4 WEEKS
     Route: 042
     Dates: start: 20220913
  18. INFLECTRA [Suspect]
     Active Substance: INFLIXIMAB-DYYB
     Dosage: 300 MG,EVERY 4 WEEKS
     Route: 042
     Dates: start: 20221021
  19. INFLECTRA [Suspect]
     Active Substance: INFLIXIMAB-DYYB
     Dosage: 300 MG , EVERY 4 WEEKS
     Route: 042
     Dates: start: 20221117
  20. MESALAMINE [Concomitant]
     Active Substance: MESALAMINE
     Dosage: 1 DF DOSAGE NOT AVAILABLE
     Route: 065
  21. PREDNISONE [Concomitant]
     Active Substance: PREDNISONE
     Dosage: 40 MG
  22. PREDNISONE [Concomitant]
     Active Substance: PREDNISONE
     Dosage: 10 MG TAPERING DOSE - STARTED AT 40MG
     Route: 065

REACTIONS (9)
  - Condition aggravated [Unknown]
  - Therapeutic product effect incomplete [Unknown]
  - Off label use [Unknown]
  - Inappropriate schedule of product administration [Unknown]
  - Off label use [Unknown]
  - Intentional product use issue [Unknown]
  - Off label use [Unknown]
  - Asymptomatic COVID-19 [Not Recovered/Not Resolved]
  - C-reactive protein increased [Recovering/Resolving]

NARRATIVE: CASE EVENT DATE: 20210201
